FAERS Safety Report 17568481 (Version 1)
Quarter: 2020Q1

REPORT INFORMATION
  Report Type: Spontaneous
  Country: FR (occurrence: FR)
  Receive Date: 20200320
  Receipt Date: 20200320
  Transmission Date: 20200409
  Serious: Yes (Other)
  Sender: FDA-Public Use
  Company Number: FR-ELI_LILLY_AND_COMPANY-FR202003006232

PATIENT
  Age: 44 Year
  Sex: Male
  Weight: 126 kg

DRUGS (4)
  1. COLCHIMAX [COLCHICINE;DICYCLOVERINE HYDROCHLO [Suspect]
     Active Substance: COLCHICINE\DICYCLOMINE HYDROCHLORIDE
     Indication: GOUT
     Dosage: UNK UNK, UNKNOWN
     Route: 048
  2. LERCAN [Suspect]
     Active Substance: LERCANIDIPINE
     Indication: HYPERTENSION
     Dosage: UNK, UNKNOWN
     Route: 048
  3. TALTZ [Suspect]
     Active Substance: IXEKIZUMAB
     Indication: PSORIASIS
     Dosage: 1 DOSAGE FORM, WEEKLY (1/W)
     Route: 058
     Dates: start: 201802, end: 20191129
  4. TRAMADOL. [Suspect]
     Active Substance: TRAMADOL
     Indication: PAIN
     Dosage: UNK UNK, UNKNOWN
     Route: 048

REACTIONS (1)
  - Depression [Recovered/Resolved]

NARRATIVE: CASE EVENT DATE: 201905
